FAERS Safety Report 7237809-5 (Version None)
Quarter: 2011Q1

REPORT INFORMATION
  Report Type: 
  Country: None (occurrence: None)
  Receive Date: 20110121
  Receipt Date: 20110112
  Transmission Date: 20110831
  Serious: Yes (Hospitalization)
  Sender: FDA-Public Use
  Company Number: ES-ROCHE-753322

PATIENT
  Age: 47 Year
  Sex: Male

DRUGS (9)
  1. PEGINTERFERON ALFA-2A [Suspect]
     Indication: HEPATITIS C
     Dosage: FORM: PRE-FILLED SYRINGE
     Route: 058
     Dates: start: 20090913, end: 20101008
  2. STILNOX [Concomitant]
     Route: 048
  3. METFORMIN HCL [Concomitant]
     Route: 048
     Dates: start: 20050101
  4. PANTOPRAZOLE [Concomitant]
     Route: 048
  5. EUTIROX [Concomitant]
     Route: 048
  6. NORVIR [Concomitant]
     Route: 048
     Dates: start: 20050101, end: 20101008
  7. TELZIR [Concomitant]
     Route: 048
     Dates: start: 20050101, end: 20101008
  8. TRUVADA [Concomitant]
     Route: 048
     Dates: start: 20050101, end: 20101008
  9. RIBAVIRIN [Suspect]
     Indication: HEPATITIS C
     Route: 048
     Dates: start: 20090913, end: 20101008

REACTIONS (6)
  - THROMBOCYTOPENIA [None]
  - GASTRITIS EROSIVE [None]
  - LEUKOPENIA [None]
  - GASTROINTESTINAL HAEMORRHAGE [None]
  - RENAL FAILURE ACUTE [None]
  - ANAEMIA [None]
